FAERS Safety Report 7576543-9 (Version None)
Quarter: 2011Q2

REPORT INFORMATION
  Report Type: 
  Country: None (occurrence: None)
  Receive Date: 20110628
  Receipt Date: 20110610
  Transmission Date: 20111010
  Serious: Yes (Death, Hospitalization, Other)
  Sender: FDA-Public Use
  Company Number: US-BAYER-201013581NA

PATIENT
  Age: 21 Year
  Sex: Female
  Weight: 136.5 kg

DRUGS (13)
  1. PREMARIN [Concomitant]
  2. ORTHO TRI-CYCLEN [Concomitant]
  3. HYDROCHLOROTHIAZIDE [Concomitant]
  4. AMBIEN [Concomitant]
     Indication: INSOMNIA
  5. METFORMIN HCL [Concomitant]
  6. LISINOPRIL [Concomitant]
  7. KLONOPIN [Concomitant]
     Indication: ANXIETY
  8. ICAR [Concomitant]
  9. PREDNISONE [Concomitant]
  10. YAZ [Suspect]
     Indication: PRODUCT USED FOR UNKNOWN INDICATION
     Dosage: UNK
     Dates: start: 20080101, end: 20090108
  11. ORTHO-NOVUM [ETHINYLESTRADIOL,NORETHISTERONE] [Concomitant]
  12. TETRACYCLINE [Concomitant]
  13. CHROMAGEN FA [Concomitant]

REACTIONS (1)
  - PULMONARY EMBOLISM [None]
